FAERS Safety Report 6414161-6 (Version None)
Quarter: 2009Q4

REPORT INFORMATION
  Report Type: 
  Country: None (occurrence: None)
  Receive Date: 20091026
  Receipt Date: 20091014
  Transmission Date: 20100525
  Serious: Yes (Hospitalization, Other)
  Sender: FDA-Public Use
  Company Number: NL-PFIZER INC-2009228137

PATIENT
  Age: 74 Year

DRUGS (3)
  1. SUTENT [Suspect]
     Indication: RENAL CELL CARCINOMA
     Dosage: 50 MG, UNK
     Dates: start: 20090325, end: 20090412
  2. ASCAL [Concomitant]
     Indication: ACUTE CORONARY SYNDROME
     Dosage: 80 MG, UNK
     Route: 048
     Dates: start: 20071001
  3. FERROFUMARAT [Concomitant]
     Indication: IRON DEFICIENCY ANAEMIA
     Dosage: 200 MG, 3X/DAY
     Route: 048
     Dates: start: 20071001

REACTIONS (3)
  - JAUNDICE [None]
  - PSORIASIS [None]
  - THROMBOCYTOPENIA [None]
